FAERS Safety Report 18215212 (Version 1)
Quarter: 2020Q3

REPORT INFORMATION
  Report Type: Spontaneous
  Country: US (occurrence: US)
  Receive Date: 20200831
  Receipt Date: 20200831
  Transmission Date: 20201103
  Serious: Yes (Other)
  Sender: FDA-Public Use
  Company Number: US-AMNEAL PHARMACEUTICALS-2020-AMRX-02629

PATIENT
  Age: 52 Year
  Sex: Female

DRUGS (5)
  1. ITRACONAZOLE. [Suspect]
     Active Substance: ITRACONAZOLE
     Indication: PNEUMONIA BLASTOMYCES
     Dosage: 200 MILLIGRAM, EVERY 8HR, FOR 3 DAYS
     Route: 048
  2. ITRACONAZOLE. [Suspect]
     Active Substance: ITRACONAZOLE
     Dosage: 200 MILLIGRAM, 2 /DAY
     Route: 048
  3. ITRACONAZOLE. [Suspect]
     Active Substance: ITRACONAZOLE
     Dosage: 100 MILLIGRAM, DAILY
     Route: 048
  4. ITRACONAZOLE. [Suspect]
     Active Substance: ITRACONAZOLE
     Dosage: 300 MILLIGRAM, QD, 200MG IN MORNING AND 100MG IN EVENING
     Route: 048
  5. ITRACONAZOLE. [Suspect]
     Active Substance: ITRACONAZOLE
     Dosage: 100 MILLIGRAM, 2 /DAY
     Route: 048

REACTIONS (5)
  - Metabolic acidosis [Recovered/Resolved]
  - Oedema [Recovered/Resolved]
  - Respiratory acidosis [Recovered/Resolved]
  - Hypertension [Recovered/Resolved]
  - Hypokalaemia [Recovered/Resolved]
